FAERS Safety Report 9454051 (Version 1)
Quarter: 2013Q3

REPORT INFORMATION
  Report Type: Report from Study
  Country: US (occurrence: US)
  Receive Date: 20130812
  Receipt Date: 20130812
  Transmission Date: 20140515
  Serious: Yes (Other)
  Sender: FDA-Public Use
  Company Number: US-CUBIST PHARMACEUTICAL, INC.-2013CBST000196

PATIENT
  Age: 42 Year
  Sex: Male
  Weight: 93 kg

DRUGS (7)
  1. CUBICIN [Suspect]
     Indication: STAPHYLOCOCCAL BACTERAEMIA
     Dosage: 860 MG, QD
  2. CUBICIN [Suspect]
     Dosage: 9.2 MG/KG, QD
  3. CUBICIN [Suspect]
     Indication: STAPHYLOCOCCAL BACTERAEMIA
     Dosage: 1500 MG, Q8H
     Route: 042
     Dates: start: 20090220, end: 20090221
  4. CUBICIN [Suspect]
     Dosage: 1000 MG, Q12H
     Route: 042
     Dates: start: 20090221, end: 20090222
  5. CUBICIN [Suspect]
     Dosage: 1000 MG, PRN
     Route: 042
     Dates: start: 20090223, end: 20090227
  6. CUBICIN [Suspect]
     Dosage: 1000 MG, Q24H
     Route: 042
     Dates: start: 20090227, end: 20090301
  7. GANCICLOVIR [Suspect]
     Indication: ANTIBIOTIC THERAPY
     Dosage: UNK
     Route: 048

REACTIONS (1)
  - Renal failure [Recovered/Resolved with Sequelae]
